FAERS Safety Report 20646275 (Version 1)
Quarter: 2022Q1

REPORT INFORMATION
  Report Type: Spontaneous
  Country: US (occurrence: None)
  Receive Date: 20220329
  Receipt Date: 20220329
  Transmission Date: 20220423
  Serious: Yes (Life-Threatening, Hospitalization, Other)
  Sender: FDA-Public Use
  Company Number: US-MLMSERVICE-20220315-3431109-1

PATIENT
  Age: 24 Year
  Sex: Female

DRUGS (1)
  1. VANCOMYCIN [Suspect]
     Active Substance: VANCOMYCIN
     Indication: Device related infection
     Dosage: UNKNOWN
     Route: 041

REACTIONS (3)
  - Paraplegia [Unknown]
  - Anaphylactic reaction [Unknown]
  - Spinal stroke [Unknown]
